FAERS Safety Report 6079204-0 (Version None)
Quarter: 2009Q1

REPORT INFORMATION
  Report Type: 
  Country: None (occurrence: None)
  Receive Date: 20090216
  Receipt Date: 20090209
  Transmission Date: 20090719
  Serious: Yes (Life-Threatening)
  Sender: FDA-Public Use
  Company Number: B0558743A

PATIENT
  Age: 34 Year
  Sex: Male

DRUGS (2)
  1. AMOXICILLIN [Suspect]
     Indication: TONSILLITIS
     Route: 065
     Dates: start: 20090117, end: 20090117
  2. EFFERALGAN [Suspect]
     Indication: TONSILLITIS
     Route: 065
     Dates: start: 20090117, end: 20090117

REACTIONS (3)
  - DYSPHAGIA [None]
  - FACE OEDEMA [None]
  - LOSS OF CONSCIOUSNESS [None]
